FAERS Safety Report 22176577 (Version 11)
Quarter: 2023Q4

REPORT INFORMATION
  Report Type: Report from Study
  Country: CO (occurrence: CO)
  Receive Date: 20230405
  Receipt Date: 20231218
  Transmission Date: 20240110
  Serious: Yes (Other)
  Sender: FDA-Public Use
  Company Number: CO-TAKEDA-2023TUS034724

PATIENT
  Age: 4 Year
  Sex: Male
  Weight: 17 kg

DRUGS (3)
  1. IDURSULFASE [Suspect]
     Active Substance: IDURSULFASE
     Indication: Mucopolysaccharidosis II
     Dosage: 8.4 MILLIGRAM, 1/WEEK
     Route: 042
     Dates: start: 20230317
  2. IDURSULFASE [Suspect]
     Active Substance: IDURSULFASE
     Dosage: 8.4 GRAM, 1/WEEK
     Route: 042
     Dates: start: 20230318
  3. IDURSULFASE [Suspect]
     Active Substance: IDURSULFASE
     Dosage: 8.4 MILLIGRAM, 1/WEEK
     Route: 042

REACTIONS (20)
  - Venous injury [Recovering/Resolving]
  - Puncture site pain [Recovering/Resolving]
  - Puncture site oedema [Recovering/Resolving]
  - Sputum discoloured [Recovering/Resolving]
  - Conjunctivitis [Unknown]
  - Respiratory disorder [Unknown]
  - Influenza [Recovered/Resolved]
  - Wound [Recovering/Resolving]
  - Infected bite [Recovering/Resolving]
  - Treatment noncompliance [Unknown]
  - Weight decreased [Unknown]
  - Body height increased [Unknown]
  - Diarrhoea [Recovering/Resolving]
  - Cough [Recovering/Resolving]
  - Abdominal pain [Recovered/Resolved]
  - Vomiting [Recovered/Resolved]
  - Pyrexia [Unknown]
  - Inappropriate schedule of product administration [Unknown]
  - Product dose omission issue [Unknown]
  - Product prescribing error [Unknown]

NARRATIVE: CASE EVENT DATE: 20230330
